FAERS Safety Report 4806878-1 (Version None)
Quarter: 2005Q4

REPORT INFORMATION
  Report Type: 
  Country: None (occurrence: None)
  Receive Date: 20051019
  Receipt Date: 20051003
  Transmission Date: 20060501
  Serious: Yes (Other)
  Sender: FDA-Public Use
  Company Number: FR_051007249

PATIENT
  Sex: Female

DRUGS (1)
  1. RALOXIFENE HCL [Suspect]
     Dates: start: 20030101, end: 20030101

REACTIONS (2)
  - BREAST CANCER FEMALE [None]
  - BREAST CANCER RECURRENT [None]
